FAERS Safety Report 22187268 (Version 3)
Quarter: 2024Q1

REPORT INFORMATION
  Report Type: Spontaneous
  Country: US (occurrence: US)
  Receive Date: 20230407
  Receipt Date: 20240116
  Transmission Date: 20240409
  Serious: Yes (Death, Hospitalization, Other)
  Sender: FDA-Public Use
  Company Number: US-PFIZER INC-202300144172

PATIENT
  Age: 80 Year
  Sex: Male
  Weight: 86.18 kg

DRUGS (1)
  1. VYNDAMAX [Suspect]
     Active Substance: TAFAMIDIS
     Indication: Cardiac amyloidosis
     Dosage: 61 MG, 1X/DAY
     Route: 048

REACTIONS (7)
  - Hepatic cirrhosis [Fatal]
  - Hepatic failure [Fatal]
  - Asthenia [Unknown]
  - Coma [Unknown]
  - Fluid retention [Unknown]
  - Weight fluctuation [Unknown]
  - Body height decreased [Unknown]

NARRATIVE: CASE EVENT DATE: 20230301
